FAERS Safety Report 14128290 (Version 1)
Quarter: 2017Q4

REPORT INFORMATION
  Report Type: Spontaneous
  Country: US (occurrence: US)
  Receive Date: 20171025
  Receipt Date: 20171025
  Transmission Date: 20180321
  Serious: No
  Sender: FDA-Public Use
  Company Number: None

PATIENT
  Sex: Female

DRUGS (1)
  1. QVAR [Suspect]
     Active Substance: BECLOMETHASONE DIPROPIONATE

REACTIONS (6)
  - Oral pain [None]
  - Pharyngeal erythema [None]
  - Oropharyngeal pain [None]
  - Gingival erythema [None]
  - Gingival pain [None]
  - Oral mucosal erythema [None]
